FAERS Safety Report 19884030 (Version 2)
Quarter: 2021Q4

REPORT INFORMATION
  Report Type: Spontaneous
  Country: US (occurrence: US)
  Receive Date: 20210927
  Receipt Date: 20211015
  Transmission Date: 20220303
  Serious: Yes (Other)
  Sender: FDA-Public Use
  Company Number: US-AMGEN-USASP2021144846

PATIENT
  Age: 56 Year
  Sex: Female

DRUGS (1)
  1. PROLIA [Suspect]
     Active Substance: DENOSUMAB
     Indication: Osteoporosis
     Dosage: UNK
     Route: 065
     Dates: start: 2015

REACTIONS (9)
  - Muscle rupture [Unknown]
  - Rotator cuff syndrome [Unknown]
  - Femoroacetabular impingement [Unknown]
  - Spinal laminectomy [Unknown]
  - Exostosis [Unknown]
  - Sacroiliac fusion [Unknown]
  - Spinal fusion surgery [Unknown]
  - Arthralgia [Unknown]
  - Pain in extremity [Unknown]

NARRATIVE: CASE EVENT DATE: 20180101
